FAERS Safety Report 20694855 (Version 1)
Quarter: 2022Q2

REPORT INFORMATION
  Report Type: Spontaneous
  Country: US (occurrence: None)
  Receive Date: 20220408
  Receipt Date: 20220408
  Transmission Date: 20220721
  Serious: No
  Sender: FDA-Public Use
  Company Number: None

PATIENT
  Sex: Male

DRUGS (1)
  1. ALPROSTADIL [Suspect]
     Active Substance: ALPROSTADIL

REACTIONS (3)
  - Product storage error [None]
  - Drug ineffective [None]
  - Product label confusion [None]

NARRATIVE: CASE EVENT DATE: 20220407
